FAERS Safety Report 5690386-2 (Version None)
Quarter: 2008Q2

REPORT INFORMATION
  Report Type: 
  Country: None (occurrence: None)
  Receive Date: 20080401
  Receipt Date: 20080319
  Transmission Date: 20081010
  Serious: Yes (Hospitalization)
  Sender: FDA-Public Use
  Company Number: GB-AMGEN-UK268804

PATIENT
  Sex: Female

DRUGS (5)
  1. NEULASTA [Suspect]
     Indication: CHEMOTHERAPY
     Dates: start: 20080215
  2. CYCLOPHOSPHAMIDE [Concomitant]
     Dates: start: 20080214
  3. MITOXANTRONE [Concomitant]
     Dates: start: 20080214
  4. VINCRISTINE [Concomitant]
     Dates: start: 20080214
  5. PREDNISONE TAB [Concomitant]
     Dates: start: 20080214

REACTIONS (1)
  - NEUTROPENIC SEPSIS [None]
